FAERS Safety Report 7538203-X (Version None)
Quarter: 2011Q2

REPORT INFORMATION
  Report Type: 
  Country: None (occurrence: None)
  Receive Date: 20110609
  Receipt Date: 20031001
  Transmission Date: 20111010
  Serious: Yes (Hospitalization, Other)
  Sender: FDA-Public Use
  Company Number: PHHO2003CA12490

PATIENT
  Sex: Male

DRUGS (1)
  1. CLOZAPINE [Suspect]
     Indication: SCHIZOPHRENIA
     Dates: start: 20000914

REACTIONS (5)
  - NAUSEA [None]
  - LUNG CONSOLIDATION [None]
  - EMPHYSEMA [None]
  - ABDOMINAL DISCOMFORT [None]
  - VOMITING [None]
